FAERS Safety Report 14892289 (Version 1)
Quarter: 2018Q2

REPORT INFORMATION
  Report Type: Spontaneous
  Country: US (occurrence: US)
  Receive Date: 20180509
  Receipt Date: 20180509
  Transmission Date: 20180711
  Serious: Yes (Disabling)
  Sender: FDA-Public Use
  Company Number: None

PATIENT
  Age: 34 Year
  Sex: Male
  Weight: 85.5 kg

DRUGS (5)
  1. GREEN BORNEO KRATOM [Suspect]
     Active Substance: MITRAGYNINE\HERBALS
     Indication: STRESS
     Route: 048
     Dates: end: 20180507
  2. RED THAI KRATOM [Suspect]
     Active Substance: MITRAGYNINE\HERBALS
     Indication: STRESS
     Route: 048
     Dates: end: 20180507
  3. MULTI VITAMIN [Concomitant]
     Active Substance: VITAMINS
  4. B VITAMIN [Concomitant]
  5. FISH OIL [Concomitant]
     Active Substance: FISH OIL

REACTIONS (7)
  - Chills [None]
  - Muscle spasms [None]
  - Pyrexia [None]
  - Diarrhoea [None]
  - Vomiting [None]
  - Product contamination [None]
  - Headache [None]

NARRATIVE: CASE EVENT DATE: 20180507
